FAERS Safety Report 15740006 (Version 4)
Quarter: 2019Q4

REPORT INFORMATION
  Report Type: Spontaneous
  Country: US (occurrence: US)
  Receive Date: 20181219
  Receipt Date: 20191007
  Transmission Date: 20200122
  Serious: Yes (Other)
  Sender: FDA-Public Use
  Company Number: US-SA-2018SA343297

PATIENT
  Age: 60 Year
  Sex: Female
  Weight: 86.18 kg

DRUGS (9)
  1. BACITRACIN. [Concomitant]
     Active Substance: BACITRACIN
     Dosage: UNK
     Dates: start: 20030101
  2. NEOSAR [Concomitant]
     Active Substance: CYCLOPHOSPHAMIDE
     Dosage: UNK, Q3W
     Dates: start: 20101228, end: 20101228
  3. QUINAPRIL. [Concomitant]
     Active Substance: QUINAPRIL
     Indication: HYPERTENSION
     Dosage: UNK
     Dates: start: 20030101
  4. NEOSAR [Concomitant]
     Active Substance: CYCLOPHOSPHAMIDE
     Indication: BREAST CANCER FEMALE
     Dosage: UNK, Q3W
     Dates: start: 20101026, end: 20101026
  5. CYTOXAN [Concomitant]
     Active Substance: CYCLOPHOSPHAMIDE
     Indication: BREAST CANCER FEMALE
     Dosage: UNK, UNK
  6. TRAVATAN [Concomitant]
     Active Substance: TRAVOPROST
     Dosage: UNK
     Dates: start: 20100101
  7. TAXOTERE [Suspect]
     Active Substance: DOCETAXEL
     Indication: BREAST CANCER FEMALE
     Dosage: 141 MG; 160 MG, Q3W
     Route: 042
     Dates: start: 20101026, end: 20101026
  8. LOPRESSOR [Concomitant]
     Active Substance: METOPROLOL TARTRATE
     Indication: HYPERTENSION
     Dosage: UNK
     Dates: start: 20030101
  9. TAXOTERE [Suspect]
     Active Substance: DOCETAXEL
     Dosage: 141 MG; 160 MG, Q3W
     Route: 042
     Dates: start: 20101228, end: 20101228

REACTIONS (1)
  - Alopecia [Recovering/Resolving]

NARRATIVE: CASE EVENT DATE: 20110713
